FAERS Safety Report 10412486 (Version 2)
Quarter: 2014Q4

REPORT INFORMATION
  Report Type: Spontaneous
  Country: US (occurrence: None)
  Receive Date: 20140822
  Receipt Date: 20141001
  Transmission Date: 20150528
  Serious: Yes (Death)
  Sender: FDA-Public Use
  Company Number: 2014-US-010412

PATIENT
  Age: 54 Year
  Sex: Female

DRUGS (16)
  1. MIRALAX (MACROGOL) [Concomitant]
  2. MULTIVITAMINS W/MINERALS [Concomitant]
  3. VITMIN D (ERGOCALCIFEROL) TABLET [Concomitant]
  4. FAZACLO [Suspect]
     Active Substance: CLOZAPINE
     Indication: SCHIZOPHRENIA
     Route: 048
  5. LISINOPRIL. [Concomitant]
     Active Substance: LISINOPRIL
  6. DIASTAT [Concomitant]
     Active Substance: DIAZEPAM
  7. FENOFIBRATE. [Concomitant]
     Active Substance: FENOFIBRATE
  8. METOPROLOL [Concomitant]
     Active Substance: METOPROLOL
  9. CLOTIAPINE [Concomitant]
     Active Substance: CLOTHIAPINE
  10. SEROQUEL [Concomitant]
     Active Substance: QUETIAPINE FUMARATE
  11. TEMAZEPAM. [Concomitant]
     Active Substance: TEMAZEPAM
  12. CALCIUM CARBONATE. [Concomitant]
     Active Substance: CALCIUM CARBONATE
  13. LACOSAMIDE [Concomitant]
     Active Substance: LACOSAMIDE
  14. REMERON [Concomitant]
     Active Substance: MIRTAZAPINE
  15. OMEPRAZOLE. [Concomitant]
     Active Substance: OMEPRAZOLE
  16. FERROUS SULFATE [Concomitant]
     Active Substance: FERROUS SULFATE\FERROUS SULFATE, DRIED

REACTIONS (2)
  - Toxicity to various agents [None]
  - Sleep disorder [None]

NARRATIVE: CASE EVENT DATE: 20140613
